FAERS Safety Report 16543312 (Version 1)
Quarter: 2019Q3

REPORT INFORMATION
  Report Type: Spontaneous
  Country: JP (occurrence: JP)
  Receive Date: 20190709
  Receipt Date: 20190709
  Transmission Date: 20191004
  Serious: Yes (Other)
  Sender: FDA-Public Use
  Company Number: JP-MACLEODS PHARMACEUTICALS US LTD-MAC2019022027

PATIENT

DRUGS (9)
  1. DONEPEZIL. [Suspect]
     Active Substance: DONEPEZIL
     Indication: ROSS SYNDROME
     Dosage: 10 MILLIGRAM, QD
     Route: 065
  2. SOLIFENACIN [Concomitant]
     Active Substance: SOLIFENACIN
     Indication: HYPERTONIC BLADDER
     Dosage: UNK
     Route: 065
  3. NORTRIPTYLINE [Concomitant]
     Active Substance: NORTRIPTYLINE
     Indication: MAJOR DEPRESSION
     Dosage: UNK MAXIMAL THERAPEUTIC DOSES
     Route: 065
  4. CLOMIPRAMINE [Concomitant]
     Active Substance: CLOMIPRAMINE
     Indication: MAJOR DEPRESSION
     Dosage: UNK
     Route: 065
  5. BIPERIDEN [Concomitant]
     Active Substance: BIPERIDEN
     Indication: RAPID EYE MOVEMENT SLEEP BEHAVIOUR DISORDER
     Dosage: UNK
     Route: 065
  6. MIRTAZAPINE. [Concomitant]
     Active Substance: MIRTAZAPINE
     Indication: MAJOR DEPRESSION
     Dosage: UNK, MAXIMAL THERAPEUTIC DOSES
     Route: 065
  7. IMIPRAMINE [Concomitant]
     Active Substance: IMIPRAMINE
     Indication: MAJOR DEPRESSION
     Dosage: UNK, MAXIMAL THERAPEUTIC DOSES
     Route: 065
  8. ESCITALOPRAM [Concomitant]
     Active Substance: ESCITALOPRAM OXALATE
     Indication: MAJOR DEPRESSION
     Dosage: UNK
     Route: 065
  9. DULOXETINE. [Concomitant]
     Active Substance: DULOXETINE
     Indication: MAJOR DEPRESSION
     Dosage: UNK, MAXIMAL THERAPEUTIC DOSES
     Route: 065

REACTIONS (1)
  - Hypotonia [Recovering/Resolving]
